FAERS Safety Report 10355917 (Version 2)
Quarter: 2014Q3

REPORT INFORMATION
  Report Type: Spontaneous
  Country: DE (occurrence: DE)
  Receive Date: 20140801
  Receipt Date: 20140801
  Transmission Date: 20150326
  Serious: Yes (Death, Hospitalization)
  Sender: FDA-Public Use
  Company Number: DE-AMGEN-DEUSP2014045398

PATIENT
  Age: 55 Year
  Sex: Female
  Weight: 53 kg

DRUGS (10)
  1. METOPROLOL [Concomitant]
     Active Substance: METOPROLOL
  2. LORAZEPAM. [Concomitant]
     Active Substance: LORAZEPAM
  3. GEMCITABINE [Concomitant]
     Active Substance: GEMCITABINE\GEMCITABINE HYDROCHLORIDE
     Dosage: 1500 MG, DAY 18 UNK
     Route: 042
     Dates: start: 20140131
  4. VITAMIN D                          /00107901/ [Concomitant]
     Active Substance: ERGOCALCIFEROL
     Indication: SUPPLEMENTATION THERAPY
  5. RAMIPRIL. [Concomitant]
     Active Substance: RAMIPRIL
  6. METOCLOPRAMIDE. [Concomitant]
     Active Substance: METOCLOPRAMIDE
  7. XGEVA [Suspect]
     Active Substance: DENOSUMAB
     Indication: METASTASES TO BONE
     Dosage: 120 MG, Q4WK
     Route: 058
     Dates: start: 20130130
  8. CARBOPLATIN. [Concomitant]
     Active Substance: CARBOPLATIN
     Dosage: AUC 5, DAY 1
     Route: 042
     Dates: start: 20140131
  9. VINCRISTINE [Concomitant]
     Active Substance: VINCRISTINE
     Dosage: 35 MG/M2, 8 DAYS-40 MG UNK
     Route: 042
     Dates: end: 201309
  10. CALCIMAGON                         /00751501/ [Concomitant]
     Active Substance: CALCIUM CARBONATE
     Dosage: UNK UNK, QD
     Route: 048
     Dates: start: 20140130

REACTIONS (5)
  - Hypocalcaemia [Recovered/Resolved]
  - Dyspnoea [Recovering/Resolving]
  - Electrocardiogram QT prolonged [Fatal]
  - Bronchospasm [Recovered/Resolved]
  - Tetany [Recovered/Resolved]

NARRATIVE: CASE EVENT DATE: 20140221
